FAERS Safety Report 5235891-8 (Version None)
Quarter: 2007Q1

REPORT INFORMATION
  Report Type: 
  Country: None (occurrence: None)
  Receive Date: 20061208
  Receipt Date: 20051221
  Transmission Date: 20070707
  Serious: Yes (Other)
  Sender: FDA-Public Use
  Company Number: 2005UW19255

PATIENT
  Age: 50 Year
  Sex: Male
  Weight: 90.718 kg

DRUGS (1)
  1. CRESTOR [Suspect]
     Indication: BLOOD CHOLESTEROL INCREASED
     Dosage: 20 MG PO
     Route: 048
     Dates: start: 20051101, end: 20051101

REACTIONS (2)
  - EAR CONGESTION [None]
  - NASAL CONGESTION [None]
